FAERS Safety Report 17030889 (Version 1)
Quarter: 2019Q4

REPORT INFORMATION
  Report Type: Report from Study
  Country: GB (occurrence: GB)
  Receive Date: 20191114
  Receipt Date: 20191114
  Transmission Date: 20200122
  Serious: Yes (Hospitalization, Disabling, Other)
  Sender: FDA-Public Use
  Company Number: PHHY2018GB066397

PATIENT
  Age: 44 Year
  Sex: Female
  Weight: 74.8 kg

DRUGS (3)
  1. BOTOX [Concomitant]
     Active Substance: ONABOTULINUMTOXINA
     Indication: MIGRAINE
     Dosage: UNK EVERY 3 MONTHS
     Route: 065
     Dates: start: 201301
  2. LYRICA [Concomitant]
     Active Substance: PREGABALIN
     Indication: MUSCLE SPASMS
     Dosage: 50 MG, UNK
     Route: 065
     Dates: start: 20120508, end: 20130829
  3. GILENYA [Suspect]
     Active Substance: FINGOLIMOD HYDROCHLORIDE
     Indication: MULTIPLE SCLEROSIS
     Dosage: 0.5 MG, QD
     Route: 048
     Dates: start: 20130815, end: 20170511

REACTIONS (5)
  - Secondary progressive multiple sclerosis [Not Recovered/Not Resolved]
  - Muscle spasticity [Unknown]
  - Multiple sclerosis relapse [Not Recovered/Not Resolved]
  - Blood folate decreased [Unknown]
  - Female genital tract fistula [Unknown]

NARRATIVE: CASE EVENT DATE: 20171123
